FAERS Safety Report 5747803-9 (Version None)
Quarter: 2008Q2

REPORT INFORMATION
  Report Type: 
  Country: None (occurrence: None)
  Receive Date: 20080523
  Receipt Date: 20080516
  Transmission Date: 20081010
  Serious: Yes (Other)
  Sender: FDA-Public Use
  Company Number: A0729496A

PATIENT
  Age: 41 Year
  Sex: Male
  Weight: 81.8 kg

DRUGS (2)
  1. MALARONE [Suspect]
     Indication: MALARIA PROPHYLAXIS
     Dosage: 350MG PER DAY
     Route: 048
     Dates: start: 20071101, end: 20080429
  2. SIMVASTATIN [Suspect]
     Indication: BLOOD CHOLESTEROL INCREASED
     Dosage: 40MG PER DAY
     Route: 048
     Dates: start: 20071025, end: 20080104

REACTIONS (2)
  - DRUG INTERACTION [None]
  - HEPATOTOXICITY [None]
